FAERS Safety Report 6938012-6 (Version None)
Quarter: 2010Q3

REPORT INFORMATION
  Report Type: 
  Country: None (occurrence: None)
  Receive Date: 20100820
  Receipt Date: 20100820
  Transmission Date: 20110219
  Serious: Yes (Other)
  Sender: FDA-Public Use
  Company Number: None

PATIENT
  Age: 49 Year
  Sex: Male
  Weight: 68.95 kg

DRUGS (3)
  1. ATRIPLA [Suspect]
     Indication: ACQUIRED IMMUNODEFICIENCY SYNDROME
     Dosage: ONCE PO QDAY
     Route: 048
     Dates: start: 20090728, end: 20100407
  2. NICOTINE PATCHES [Concomitant]
  3. BACTRIM DS [Concomitant]

REACTIONS (2)
  - BREAST PAIN [None]
  - GYNAECOMASTIA [None]
